FAERS Safety Report 17265001 (Version 1)
Quarter: 2020Q1

REPORT INFORMATION
  Report Type: Spontaneous
  Country: BR (occurrence: BR)
  Receive Date: 20200113
  Receipt Date: 20200113
  Transmission Date: 20200409
  Serious: Yes (Hospitalization, Other)
  Sender: FDA-Public Use
  Company Number: BR-LUNDBECK-DKLU3010259

PATIENT
  Age: 14 Year
  Sex: Male
  Weight: 21 kg

DRUGS (8)
  1. PANTOPRAZOLE [Concomitant]
     Active Substance: PANTOPRAZOLE
     Indication: GASTRIC DISORDER
     Route: 065
  2. DIAZOXIDE [Concomitant]
     Active Substance: DIAZOXIDE
     Indication: HYPERINSULINISM
     Route: 065
     Dates: start: 2017
  3. TRAVATAN [Concomitant]
     Active Substance: TRAVOPROST
     Indication: GLAUCOMA
     Route: 065
     Dates: start: 2018
  4. LABEL [Concomitant]
     Indication: GASTRIC DISORDER
     Route: 065
     Dates: start: 201907
  5. LAMOTRIGIN [Concomitant]
     Active Substance: LAMOTRIGINE
     Indication: SEIZURE
     Route: 065
     Dates: start: 201907
  6. KEPPRA [Concomitant]
     Active Substance: LEVETIRACETAM
     Indication: SEIZURE
     Route: 065
     Dates: start: 2017
  7. LAMOTRIGIN [Concomitant]
     Active Substance: LAMOTRIGINE
     Route: 065
     Dates: start: 201907
  8. FRISIUM [Suspect]
     Active Substance: CLOBAZAM
     Indication: SEIZURE
     Dosage: 20 MG, QD (TWO DOSES OF 5 MG AND ONE OF 10MG )
     Route: 065
     Dates: start: 201707

REACTIONS (4)
  - Product availability issue [Unknown]
  - Ulcer [Unknown]
  - Drug dependence [Unknown]
  - Seizure [Unknown]

NARRATIVE: CASE EVENT DATE: 201906
